FAERS Safety Report 9990063 (Version 1)
Quarter: 2014Q1

REPORT INFORMATION
  Report Type: Spontaneous
  Country: US (occurrence: None)
  Receive Date: 20140123
  Receipt Date: 20140123
  Transmission Date: 20141002
  Serious: Yes (Hospitalization)
  Sender: FDA-Public Use
  Company Number: UTC-036443

PATIENT
  Age: 64 Year
  Sex: Female
  Weight: 85.9 kg

DRUGS (3)
  1. REMODULIN [Suspect]
     Indication: PULMONARY ARTERIAL HYPERTENSION
     Dosage: 1) 66.24 UG/KG (0.046 UG/KG, 1 IN 1 MIN)
     Route: 058
     Dates: start: 20121213
  2. COUMADIN (WARFARIN)(UNKNOWN) [Concomitant]
  3. REVATIO (SILDENAFIL CITRATE)(UNKNOWN) [Concomitant]

REACTIONS (1)
  - Infusion site haemorrhage [None]
